FAERS Safety Report 23284962 (Version 2)
Quarter: 2024Q2

REPORT INFORMATION
  Report Type: Spontaneous
  Country: US (occurrence: US)
  Receive Date: 20231211
  Receipt Date: 20240627
  Transmission Date: 20240715
  Serious: No
  Sender: FDA-Public Use
  Company Number: US-THERATECHNOLOGIES INC.-2023-THE-IBA-000496

PATIENT

DRUGS (2)
  1. TROGARZO [Suspect]
     Active Substance: IBALIZUMAB-UIYK
     Indication: HIV infection
     Dosage: 2000 MG, SINGLE (LOADING DOSE)
     Route: 065
     Dates: start: 202310, end: 202310
  2. TROGARZO [Suspect]
     Active Substance: IBALIZUMAB-UIYK
     Dosage: 800 MG, EVERY 2 WEEKS (MAINTENANCE DOSE)
     Route: 065
     Dates: start: 202310

REACTIONS (3)
  - Headache [Recovered/Resolved]
  - Migraine [Recovered/Resolved]
  - Viral load increased [Not Recovered/Not Resolved]
